FAERS Safety Report 9997711 (Version 3)
Quarter: 2014Q1

REPORT INFORMATION
  Report Type: Spontaneous
  Country: US (occurrence: US)
  Receive Date: 20140311
  Receipt Date: 20140327
  Transmission Date: 20141002
  Serious: Yes (Hospitalization, Other)
  Sender: FDA-Public Use
  Company Number: US-PFIZER INC-2014067786

PATIENT
  Age: 31 Year
  Sex: Male

DRUGS (2)
  1. PRISTIQ [Suspect]
     Indication: DEPRESSION
     Dosage: 50 MG, DAILY
     Route: 048
     Dates: start: 201402, end: 201403
  2. PRISTIQ [Suspect]
     Indication: ANXIETY

REACTIONS (9)
  - Convulsion [Unknown]
  - Drug withdrawal syndrome [Unknown]
  - Headache [Unknown]
  - Nausea [Unknown]
  - Mania [Unknown]
  - Vomiting [Unknown]
  - Blood pressure increased [Unknown]
  - Abdominal discomfort [Unknown]
  - Diarrhoea [Not Recovered/Not Resolved]
